FAERS Safety Report 13442768 (Version 1)
Quarter: 2017Q2

REPORT INFORMATION
  Report Type: Spontaneous
  Country: CH (occurrence: CH)
  Receive Date: 20170414
  Receipt Date: 20170414
  Transmission Date: 20170830
  Serious: Yes (Life-Threatening, Other)
  Sender: FDA-Public Use
  Company Number: CH-AMGEN-CHESP2017056350

PATIENT
  Age: 78 Year
  Sex: Male
  Weight: 73 kg

DRUGS (10)
  1. VITARUBIN [Concomitant]
     Active Substance: CYANOCOBALAMIN
     Dosage: UNK
  2. XARELTO [Concomitant]
     Active Substance: RIVAROXABAN
     Dosage: UNK
  3. KALCIPOS D3 [Concomitant]
     Dosage: 500 MG/800 IU, UNK
  4. LOPERAMID STREULI [Concomitant]
     Dosage: UNK
     Route: 048
  5. REPATHA [Suspect]
     Active Substance: EVOLOCUMAB
     Indication: HYPERCHOLESTEROLAEMIA
     Dosage: UNK
     Route: 058
     Dates: start: 2016, end: 20170313
  6. SABCAPS [Concomitant]
     Dosage: UNK
  7. VIMOVO [Concomitant]
     Active Substance: ESOMEPRAZOLE MAGNESIUM\NAPROXEN
     Dosage: 500/20 MG, AS NECESSARY
     Route: 048
  8. CONDROSULF [Concomitant]
     Active Substance: SODIUM CHONDROITIN SULFATE
     Dosage: UNK
  9. CANSARTAN PLUS [Concomitant]
     Dosage: 16/12.5 MG, UNK
  10. PANTOPRAZOL SANDOZ [Concomitant]
     Dosage: UNK
     Route: 048

REACTIONS (2)
  - Glomerulonephritis [Unknown]
  - Acute kidney injury [Unknown]

NARRATIVE: CASE EVENT DATE: 201702
